FAERS Safety Report 19623556 (Version 2)
Quarter: 2021Q3

REPORT INFORMATION
  Report Type: Spontaneous
  Country: IN (occurrence: IN)
  Receive Date: 20210729
  Receipt Date: 20210729
  Transmission Date: 20211014
  Serious: Yes (Hospitalization, Other)
  Sender: FDA-Public Use
  Company Number: IN-HETERO-HET2021IN01493

PATIENT

DRUGS (2)
  1. ATGAM [Suspect]
     Active Substance: EQUINE THYMOCYTE IMMUNE GLOBULIN
     Indication: APLASTIC ANAEMIA
     Dosage: 250 MG, 9 VIALS PER DAY FOR 4 DAYS
     Route: 042
     Dates: start: 20210715
  2. TELMISARTAN. [Suspect]
     Active Substance: TELMISARTAN
     Indication: HYPERTENSION
     Dosage: 40 MG, QD
     Route: 065

REACTIONS (4)
  - Pancytopenia [Unknown]
  - Eye haemorrhage [Unknown]
  - Gingival bleeding [Unknown]
  - Skin haemorrhage [Unknown]
